FAERS Safety Report 9613369 (Version 4)
Quarter: 2014Q1

REPORT INFORMATION
  Report Type: Report from Study
  Country: US (occurrence: US)
  Receive Date: 20131010
  Receipt Date: 20140110
  Transmission Date: 20141002
  Serious: Yes (Hospitalization)
  Sender: FDA-Public Use
  Company Number: US-PFIZER INC-2013282501

PATIENT
  Age: 81 Year
  Sex: Male
  Weight: 87.5 kg

DRUGS (9)
  1. CYTARABINE [Suspect]
     Indication: ACUTE MYELOID LEUKAEMIA
     Dosage: 20 MG, TWICE DAILY ON DAY 1-10 OF EACH 28-DAY CYCLE, FORMULATION: SOLUTION
     Route: 058
     Dates: start: 20130904, end: 20130913
  2. PF-04449913 [Suspect]
     Indication: ACUTE MYELOID LEUKAEMIA
     Dosage: 100 MG, ONCE DAILY CONTINUOUS
     Route: 048
     Dates: start: 20130906, end: 20131008
  3. BIMATOPROST [Concomitant]
     Indication: GLAUCOMA
     Dosage: UNK
     Dates: start: 20130924
  4. FOLIC ACID [Concomitant]
     Indication: ROUTINE HEALTH MAINTENANCE
     Dosage: UNK
     Dates: start: 20130904
  5. COSOPT [Concomitant]
     Indication: GLAUCOMA
     Dosage: UNK
     Dates: start: 20110826
  6. LEVOTHYROXINE [Concomitant]
     Indication: HYPOTHYROIDISM
     Dosage: UNK
     Dates: start: 2009
  7. LATANOPROST [Concomitant]
     Indication: GLAUCOMA
     Dosage: UNK
     Dates: start: 20130904
  8. SENNA [Concomitant]
     Indication: CONSTIPATION
     Dosage: UNK
     Dates: start: 20130907
  9. COLACE [Concomitant]
     Indication: CONSTIPATION
     Dosage: UNK
     Dates: start: 20130907

REACTIONS (1)
  - Fatigue [Recovering/Resolving]
